FAERS Safety Report 10058641 (Version 1)
Quarter: 2014Q2

REPORT INFORMATION
  Report Type: Not Available
  Country: US (occurrence: US)
  Receive Date: 20140404
  Receipt Date: 20140404
  Transmission Date: 20141212
  Serious: Yes (Hospitalization)
  Sender: FDA-Public Use
  Company Number: US-VIROPHARMA INCORPORATED-20140328CINRY6066

PATIENT
  Age: 43 Year
  Sex: Female
  Weight: 63.56 kg

DRUGS (2)
  1. CINRYZE (C1 ESTERASE INHIBITOR (HUMAN)) [Suspect]
     Indication: HEREDITARY ANGIOEDEMA
     Route: 042
  2. CINRYZE (C1 ESTERASE INHIBITOR (HUMAN)) [Suspect]
     Indication: PROPHYLAXIS

REACTIONS (5)
  - Investigation [Recovered/Resolved]
  - Hereditary angioedema [Recovered/Resolved]
  - Sinusitis [Recovering/Resolving]
  - Off label use [Recovered/Resolved]
  - Poor venous access [Not Recovered/Not Resolved]
